FAERS Safety Report 7600344-6 (Version None)
Quarter: 2011Q3

REPORT INFORMATION
  Report Type: 
  Country: None (occurrence: None)
  Receive Date: 20110711
  Receipt Date: 20110629
  Transmission Date: 20111222
  Serious: Yes (Other)
  Sender: FDA-Public Use
  Company Number: US-BAYER-2011-017703

PATIENT
  Age: 23 Month
  Sex: Male
  Weight: 11.4 kg

DRUGS (4)
  1. ALPHANATE [Concomitant]
  2. KOGENATE FS [Suspect]
     Dosage: 1000 UNITS
  3. ANTIHEMOPHILIC FACTOR (HUMAN) [Concomitant]
  4. KOGENATE FS [Suspect]
     Indication: HAEMOPHILIA A WITH ANTI FACTOR VIII
     Dosage: 288U/L
     Dates: start: 20110212

REACTIONS (6)
  - UNRESPONSIVE TO STIMULI [None]
  - EYE SWELLING [None]
  - RASH GENERALISED [None]
  - OXYGEN SATURATION DECREASED [None]
  - SWELLING FACE [None]
  - HYPERSENSITIVITY [None]
